FAERS Safety Report 4645183-3 (Version None)
Quarter: 2005Q2

REPORT INFORMATION
  Report Type: 
  Country: None (occurrence: None)
  Receive Date: 20050331
  Receipt Date: 20041202
  Transmission Date: 20051028
  Serious: No
  Sender: FDA-Public Use
  Company Number: 04P-163-0282023

PATIENT
  Sex: Female
  Weight: 61.6892 kg

DRUGS (7)
  1. HUMIRA [Suspect]
     Indication: RHEUMATOID ARTHRITIS
     Dosage: 40 MCG, 1 IN 2 WK, SUBCUTANEOUS
     Route: 058
     Dates: start: 20040901
  2. METHOTREXATE SODIUM [Concomitant]
  3. OXAPROZIN [Concomitant]
  4. M.V.I. [Concomitant]
  5. TRAZODONE [Concomitant]
  6. PREDNISONE [Concomitant]
  7. ESTROGENS CONJUGATED [Concomitant]

REACTIONS (1)
  - NASOPHARYNGITIS [None]
